FAERS Safety Report 20581957 (Version 1)
Quarter: 2022Q1

REPORT INFORMATION
  Report Type: Spontaneous
  Country: FR (occurrence: FR)
  Receive Date: 20220311
  Receipt Date: 20220311
  Transmission Date: 20220423
  Serious: Yes (Death, Hospitalization)
  Sender: FDA-Public Use
  Company Number: None

PATIENT
  Age: 61 Year
  Sex: Female

DRUGS (6)
  1. CAPECITABINE [Suspect]
     Active Substance: CAPECITABINE
     Indication: Breast cancer metastatic
     Dosage: 2G MORNING AND EVENING FOR 14 DAYS THEN STOP FOR 7 DAYS
     Route: 048
     Dates: start: 20210721, end: 20211205
  2. MIRTAZAPINE [Concomitant]
     Active Substance: MIRTAZAPINE
     Dosage: 1 IN THE EVENING
     Route: 048
     Dates: start: 20210110
  3. AMLODIPINE [Concomitant]
     Active Substance: AMLODIPINE BESYLATE
     Dosage: 1 IN THE MORNING
     Route: 048
     Dates: start: 20210204
  4. TRAMADOL HYDROCHLORIDE [Concomitant]
     Active Substance: TRAMADOL HYDROCHLORIDE
     Indication: Pain
     Dosage: 8 DROPS MORNING, NOON AND EVENING, AND MORE AS NEEDED
     Route: 048
     Dates: start: 20210726
  5. LEVOTHYROXINE SODIUM [Concomitant]
     Active Substance: LEVOTHYROXINE SODIUM
     Indication: Hypothyroidism
     Dosage: 2 DROPS IN THE MORNING
     Route: 048
     Dates: start: 20211123
  6. ATORVASTATIN [Concomitant]
     Active Substance: ATORVASTATIN
     Dosage: 1 IN THE EVENING
     Route: 048
     Dates: start: 20210625

REACTIONS (2)
  - Diabetic metabolic decompensation [Fatal]
  - Thrombocytopenia [Recovered/Resolved]

NARRATIVE: CASE EVENT DATE: 20211123
